FAERS Safety Report 4682397-0 (Version None)
Quarter: 2005Q2

REPORT INFORMATION
  Report Type: 
  Country: None (occurrence: None)
  Receive Date: 20050531
  Receipt Date: 20050216
  Transmission Date: 20051028
  Serious: No
  Sender: FDA-Public Use
  Company Number: 2005BI003712

PATIENT
  Sex: Male

DRUGS (2)
  1. AMEVIVE [Suspect]
     Indication: PSORIASIS
     Dosage: 15 MG; QW; IM,   15 MG; QW; IM
     Route: 030
     Dates: start: 20040407, end: 20040623
  2. AMEVIVE [Suspect]
     Indication: PSORIASIS
     Dosage: 15 MG; QW; IM,   15 MG; QW; IM
     Route: 030
     Dates: start: 20041005, end: 20041229

REACTIONS (2)
  - INJECTION SITE PAIN [None]
  - PHARYNGOLARYNGEAL PAIN [None]
